FAERS Safety Report 25845994 (Version 1)
Quarter: 2025Q3

REPORT INFORMATION
  Report Type: Spontaneous
  Country: US (occurrence: US)
  Receive Date: 20250925
  Receipt Date: 20250925
  Transmission Date: 20251021
  Serious: Yes (Hospitalization, Other)
  Sender: ZYDUS PHARM
  Company Number: US-CADILA HEALTHCARE LIMITED-US-ZYDUS-128569

PATIENT

DRUGS (2)
  1. FENTANYL [Suspect]
     Active Substance: FENTANYL
     Indication: Product used for unknown indication
     Route: 065
  2. NALOXONE [Concomitant]
     Active Substance: NALOXONE
     Indication: Drug abuse
     Route: 065

REACTIONS (2)
  - Hashimoto^s encephalopathy [Recovered/Resolved]
  - Drug abuse [Unknown]
